FAERS Safety Report 9022951 (Version 1)
Quarter: 2013Q1

REPORT INFORMATION
  Report Type: Spontaneous
  Country: US (occurrence: US)
  Receive Date: 20130120
  Receipt Date: 20130120
  Transmission Date: 20140127
  Serious: No
  Sender: FDA-Public Use
  Company Number: US-ALLERGAN-1216287US

PATIENT
  Age: 52 None
  Sex: Female

DRUGS (7)
  1. BOTOX? [Suspect]
     Indication: MIGRAINE
     Dosage: 5 UNITS, SINGLE
     Route: 030
     Dates: start: 20121001, end: 20121001
  2. BOTOX? [Suspect]
     Dosage: 75 UNITS, SINGLE
     Route: 030
     Dates: start: 20120822, end: 20120822
  3. BOTOX? [Suspect]
     Dosage: 15 UNITS, SINGLE
     Route: 030
     Dates: start: 20111012, end: 20111012
  4. BOTOX? [Suspect]
     Dosage: 10 UNITS, SINGLE
     Route: 030
     Dates: start: 20110923, end: 20110923
  5. BOTOX? [Suspect]
     Dosage: 70 UNITS, SINGLE
     Route: 030
     Dates: start: 20110830, end: 20110830
  6. BOTOX? [Suspect]
     Dosage: 15 UNITS, SINGLE
     Route: 030
     Dates: start: 20110513, end: 20110513
  7. BOTOX? [Suspect]
     Dosage: 60 UNITS, SINGLE
     Route: 030
     Dates: start: 20110429, end: 20110429

REACTIONS (1)
  - Muscle atrophy [Not Recovered/Not Resolved]
